FAERS Safety Report 7507172-0 (Version None)
Quarter: 2011Q2

REPORT INFORMATION
  Report Type: 
  Country: None (occurrence: None)
  Receive Date: 20110526
  Receipt Date: 20110511
  Transmission Date: 20111010
  Serious: Yes (Other)
  Sender: FDA-Public Use
  Company Number: SG-BAYER-2011-041237

PATIENT
  Age: 22 Year
  Sex: Female

DRUGS (3)
  1. DICLOFENAC SODIUM [Suspect]
  2. ACETAMINOPHEN [Suspect]
  3. ACETYLSALICYLIC ACID SRT [Suspect]

REACTIONS (3)
  - PRURITUS [None]
  - ANGIOEDEMA [None]
  - RASH [None]
